FAERS Safety Report 6305680-1 (Version None)
Quarter: 2009Q3

REPORT INFORMATION
  Report Type: 
  Country: None (occurrence: None)
  Receive Date: 20090807
  Receipt Date: 20090731
  Transmission Date: 20100115
  Serious: Yes (Other)
  Sender: FDA-Public Use
  Company Number: IPS_01713_2009

PATIENT
  Sex: Male
  Weight: 101.1521 kg

DRUGS (15)
  1. APOKYN [Suspect]
     Indication: PARKINSON'S DISEASE
     Dosage: (0.2 ML, ONCE TO TWICE PER DAY SUBCUTANEOUS)
     Route: 058
     Dates: start: 20090706
  2. ASPIRIN [Concomitant]
  3. BUSPAR [Concomitant]
  4. SINEMET [Concomitant]
  5. COMTAN [Concomitant]
  6. NEURONTIN [Concomitant]
  7. LISINOPRIL [Concomitant]
  8. LYRICA [Concomitant]
  9. SEROQUEL [Concomitant]
  10. AZILECT [Concomitant]
  11. REQUIP [Concomitant]
  12. FLOMAX [Concomitant]
  13. EFFEXOR XR [Concomitant]
  14. XANAX [Concomitant]
  15. DARVOCET [Concomitant]

REACTIONS (4)
  - AGGRESSION [None]
  - BLOOD URINE PRESENT [None]
  - COLD SWEAT [None]
  - PALLOR [None]
